FAERS Safety Report 23915822 (Version 4)
Quarter: 2024Q3

REPORT INFORMATION
  Report Type: Spontaneous
  Country: US (occurrence: US)
  Receive Date: 20240529
  Receipt Date: 20240919
  Transmission Date: 20241017
  Serious: Yes (Other)
  Sender: CALLIDITAS THERAPEUTICS
  Company Number: US-Calliditas-2024CAL00824

PATIENT
  Age: 72 Year
  Sex: Female

DRUGS (1)
  1. TARPEYO [Suspect]
     Active Substance: BUDESONIDE
     Indication: IgA nephropathy
     Route: 048
     Dates: start: 20240221, end: 20240906

REACTIONS (3)
  - Diarrhoea haemorrhagic [Recovered/Resolved]
  - Headache [Recovered/Resolved]
  - Gastroenteritis astroviral [Recovered/Resolved]

NARRATIVE: CASE EVENT DATE: 20240826
